FAERS Safety Report 8974238 (Version 1)
Quarter: 2012Q4

REPORT INFORMATION
  Report Type: Spontaneous
  Country: IT (occurrence: None)
  Receive Date: 20121212
  Receipt Date: 20121212
  Transmission Date: 20130627
  Serious: Yes (Hospitalization, Other)
  Sender: FDA-Public Use
  Company Number: 142869

PATIENT
  Age: 39 Year
  Sex: Female

DRUGS (1)
  1. VINBLASTINE SULFATE [Suspect]
     Indication: HODGKIN^S LYMPHOMA

REACTIONS (12)
  - Toxicity to various agents [None]
  - Medication error [None]
  - Accidental overdose [None]
  - Neurotoxicity [None]
  - Gastrointestinal toxicity [None]
  - Hepatotoxicity [None]
  - Haematotoxicity [None]
  - Drug administration error [None]
  - Colitis [None]
  - Ileus paralytic [None]
  - Thrombocytopenia [None]
  - Neutropenia [None]
